FAERS Safety Report 6342676-8 (Version None)
Quarter: 2009Q3

REPORT INFORMATION
  Report Type: 
  Country: None (occurrence: None)
  Receive Date: 20090908
  Receipt Date: 20090825
  Transmission Date: 20100115
  Serious: Yes (Hospitalization)
  Sender: FDA-Public Use
  Company Number: FR-CELGENEUS-056-C5013-09030519

PATIENT
  Sex: Male
  Weight: 51 kg

DRUGS (9)
  1. CC-5013 [Suspect]
     Indication: MULTIPLE MYELOMA
     Route: 048
     Dates: start: 20090220, end: 20090310
  2. DEXAMETHASONE [Suspect]
     Indication: MULTIPLE MYELOMA
     Route: 065
     Dates: start: 20090220, end: 20090312
  3. TAHOR [Concomitant]
     Route: 048
  4. VASTEN [Concomitant]
     Route: 048
     Dates: start: 20080101, end: 20090312
  5. ACETYLSALICYLATE LYSINE [Concomitant]
     Indication: THROMBOSIS PROPHYLAXIS
     Route: 048
     Dates: start: 20090220, end: 20090323
  6. CONTRAMAL [Concomitant]
     Indication: BONE PAIN
     Route: 048
     Dates: start: 20090202, end: 20090305
  7. XANAX [Concomitant]
     Indication: PROPHYLAXIS
     Route: 048
     Dates: start: 20090204
  8. AERIUS [Concomitant]
     Route: 048
     Dates: start: 20090302, end: 20090330
  9. TRIFLUCAN [Concomitant]
     Route: 048
     Dates: start: 20090302, end: 20090314

REACTIONS (4)
  - BONE PAIN [None]
  - GENERAL PHYSICAL HEALTH DETERIORATION [None]
  - LUNG DISORDER [None]
  - MALNUTRITION [None]
